FAERS Safety Report 11082801 (Version 2)
Quarter: 2015Q2

REPORT INFORMATION
  Report Type: Report from Study
  Country: US (occurrence: US)
  Receive Date: 20150501
  Receipt Date: 20150619
  Transmission Date: 20150821
  Serious: Yes (Other)
  Sender: FDA-Public Use
  Company Number: US-SA-2014SA162562

PATIENT
  Age: 58 Year
  Sex: Male
  Weight: 108.86 kg

DRUGS (11)
  1. AUBAGIO [Suspect]
     Active Substance: TERIFLUNOMIDE
     Indication: MULTIPLE SCLEROSIS
     Route: 048
     Dates: start: 20150206
  2. ACYCLOVIR. [Concomitant]
     Active Substance: ACYCLOVIR
  3. SERTRALINE [Concomitant]
     Active Substance: SERTRALINE HYDROCHLORIDE
  4. HYDROXYZINE [Concomitant]
     Active Substance: HYDROXYZINE\HYDROXYZINE HYDROCHLORIDE
  5. AUBAGIO [Suspect]
     Active Substance: TERIFLUNOMIDE
     Indication: MULTIPLE SCLEROSIS
     Route: 048
     Dates: start: 20141117, end: 20150115
  6. AUBAGIO [Suspect]
     Active Substance: TERIFLUNOMIDE
     Indication: MULTIPLE SCLEROSIS
     Route: 048
     Dates: start: 20150117
  7. VALIUM [Concomitant]
     Active Substance: DIAZEPAM
  8. LIPITOR [Concomitant]
     Active Substance: ATORVASTATIN CALCIUM
  9. FENOFIBRATE. [Concomitant]
     Active Substance: FENOFIBRATE
  10. TECFIDERA [Concomitant]
     Active Substance: DIMETHYL FUMARATE
     Indication: MULTIPLE SCLEROSIS
     Dates: start: 20140501, end: 20141116
  11. LYRICA [Concomitant]
     Active Substance: PREGABALIN

REACTIONS (17)
  - Back injury [Unknown]
  - Blood glucose increased [Recovering/Resolving]
  - Feeling abnormal [Unknown]
  - Insomnia [Unknown]
  - Nasal congestion [Recovering/Resolving]
  - Alopecia [Unknown]
  - Nasopharyngitis [Recovering/Resolving]
  - Drug dose omission [Unknown]
  - Hair texture abnormal [Unknown]
  - Fall [Unknown]
  - Constipation [Unknown]
  - Type 1 diabetes mellitus [Not Recovered/Not Resolved]
  - Back pain [Unknown]
  - Memory impairment [Unknown]
  - Productive cough [Recovering/Resolving]
  - Diarrhoea [Not Recovered/Not Resolved]
  - Unevaluable event [Recovering/Resolving]

NARRATIVE: CASE EVENT DATE: 2014
